FAERS Safety Report 13509209 (Version 1)
Quarter: 2017Q2

REPORT INFORMATION
  Report Type: Other
  Country: FR (occurrence: FR)
  Receive Date: 20170503
  Receipt Date: 20170503
  Transmission Date: 20170830
  Serious: Yes (Death, Hospitalization, Other)
  Sender: FDA-Public Use
  Company Number: FR-EMCURE PHARMS-2017HTG00100

PATIENT
  Age: 46 Year
  Sex: Male

DRUGS (4)
  1. ALKERAN [Suspect]
     Active Substance: MELPHALAN
     Indication: B-CELL LYMPHOMA
     Dosage: UNK
     Route: 042
     Dates: start: 20160216, end: 20160216
  2. BICNU [Suspect]
     Active Substance: CARMUSTINE
     Indication: B-CELL LYMPHOMA
     Dosage: UNK
     Route: 042
     Dates: start: 20160211, end: 20160211
  3. CYTARABINE. [Suspect]
     Active Substance: CYTARABINE
     Indication: B-CELL LYMPHOMA
     Dosage: 380 MG, EVERY 48 HOURS
     Route: 042
     Dates: start: 20160212, end: 20160215
  4. ETOPOPHOS [Suspect]
     Active Substance: ETOPOSIDE PHOSPHATE
     Indication: B-CELL LYMPHOMA
     Dosage: 190 MG, EVERY 48 HOURS
     Route: 042
     Dates: start: 20160212, end: 20160215

REACTIONS (8)
  - Diarrhoea [Unknown]
  - Multiple organ dysfunction syndrome [Fatal]
  - Abdominal distension [Unknown]
  - Fluid overload [Unknown]
  - Septic shock [Fatal]
  - Gastrointestinal wall thickening [Not Recovered/Not Resolved]
  - Interstitial lung disease [Unknown]
  - Febrile bone marrow aplasia [Not Recovered/Not Resolved]

NARRATIVE: CASE EVENT DATE: 20160226
